FAERS Safety Report 17409479 (Version 2)
Quarter: 2021Q3

REPORT INFORMATION
  Report Type: Spontaneous
  Country: US (occurrence: US)
  Receive Date: 20200212
  Receipt Date: 20210817
  Transmission Date: 20211014
  Serious: Yes (Other)
  Sender: FDA-Public Use
  Company Number: US-PFIZER INC-2020060758

PATIENT
  Age: 65 Year
  Sex: Female

DRUGS (1)
  1. VYNDAMAX [Suspect]
     Active Substance: TAFAMIDIS
     Dosage: 61 MG

REACTIONS (4)
  - Brain injury [Recovering/Resolving]
  - Product dose omission issue [Unknown]
  - Fall [Recovering/Resolving]
  - Malaise [Unknown]
